FAERS Safety Report 6972925-4 (Version None)
Quarter: 2010Q3

REPORT INFORMATION
  Report Type: 
  Country: None (occurrence: None)
  Receive Date: 20100909
  Receipt Date: 20100831
  Transmission Date: 20110219
  Serious: Yes (Hospitalization)
  Sender: FDA-Public Use
  Company Number: PHHY2009DE01553

PATIENT
  Age: 56 Year
  Sex: Male

DRUGS (10)
  1. DIOVAN HCT [Suspect]
     Indication: HYPERTENSION
     Dosage: 1 DF (160/12.5 MG), QD
     Route: 048
     Dates: start: 20080210
  2. CARVEDILOL [Suspect]
     Dosage: 12.5 MG, 2DF/DAY
     Route: 048
     Dates: start: 20080430
  3. ASPIRIN [Concomitant]
     Indication: PROPHYLAXIS
     Dosage: 100 MG, 1 DF/DAY
     Route: 048
     Dates: start: 20080315
  4. PRES PLUS [Concomitant]
     Dosage: UNK
     Dates: start: 20010202
  5. NIF-TEN [Concomitant]
     Dosage: UNK
     Dates: start: 20010202
  6. NORVASC [Concomitant]
     Dosage: UNK
     Dates: start: 20010202
  7. NEBIVOLOL HCL [Concomitant]
     Dosage: UNK
     Dates: start: 20010202
  8. OLMESARTAN MEDOXOMIL [Concomitant]
     Dosage: UNK
     Dates: start: 20010202
  9. CYNT [Concomitant]
     Dosage: UNK
     Dates: start: 20010202
  10. ARELIX [Concomitant]
     Dosage: UNK
     Dates: start: 20010202

REACTIONS (4)
  - HYPERHIDROSIS [None]
  - MALAISE [None]
  - NAUSEA [None]
  - PAIN IN EXTREMITY [None]
